FAERS Safety Report 19205793 (Version 3)
Quarter: 2024Q3

REPORT INFORMATION
  Report Type: Spontaneous
  Country: US (occurrence: None)
  Receive Date: 20210503
  Receipt Date: 20240906
  Transmission Date: 20241016
  Serious: No
  Sender: DOMPE FARMACEUTICI
  Company Number: US-FARMAPROD-202103-0313

PATIENT
  Age: 75 Year
  Sex: Female

DRUGS (17)
  1. OXERVATE [Suspect]
     Active Substance: CENEGERMIN-BKBJ
     Indication: Neurotrophic keratopathy
     Route: 047
     Dates: start: 20210222, end: 20210419
  2. OXERVATE [Suspect]
     Active Substance: CENEGERMIN-BKBJ
     Route: 047
     Dates: start: 20220620
  3. OXERVATE [Suspect]
     Active Substance: CENEGERMIN-BKBJ
  4. MODERNA COVID-19 VACCINE [Concomitant]
     Active Substance: ELASOMERAN
     Dates: start: 20210228, end: 20210228
  5. RETAINE MGD [Concomitant]
     Active Substance: LIGHT MINERAL OIL\MINERAL OIL
     Dosage: 0.5%-0.5%
  6. PRED FORTE [Concomitant]
     Active Substance: PREDNISOLONE ACETATE
  7. VITAMINS [Concomitant]
     Active Substance: VITAMINS
  8. LEVOTHYROXINE [Concomitant]
     Active Substance: LEVOTHYROXINE\LEVOTHYROXINE SODIUM
  9. METOPROLOL SUCCINATE [Concomitant]
     Active Substance: METOPROLOL SUCCINATE
  10. BACLOFEN [Concomitant]
     Active Substance: BACLOFEN
  11. ESTRADIOL [Concomitant]
     Active Substance: ESTRADIOL
  12. VITAMIN B12 [Concomitant]
     Active Substance: CYANOCOBALAMIN
  13. CALCIUM [Concomitant]
     Active Substance: CALCIUM
  14. VITAMIN C [Concomitant]
     Active Substance: ASCORBIC ACID
  15. FISH OIL [Concomitant]
     Active Substance: FISH OIL
     Dosage: 100 MG-150 MG
  16. LOSARTAN POTASSIUM [Concomitant]
     Active Substance: LOSARTAN POTASSIUM
  17. HYDROCHLOROTHIAZIDE [Concomitant]
     Active Substance: HYDROCHLOROTHIAZIDE

REACTIONS (6)
  - Ocular hyperaemia [Unknown]
  - Vision blurred [Not Recovered/Not Resolved]
  - Eye irritation [Unknown]
  - Mydriasis [Unknown]
  - Eye irritation [Unknown]
  - Hypotension [Unknown]

NARRATIVE: CASE EVENT DATE: 20210302
